FAERS Safety Report 5026753-X (Version None)
Quarter: 2006Q2

REPORT INFORMATION
  Report Type: 
  Country: None (occurrence: None)
  Receive Date: 20060608
  Receipt Date: 20060530
  Transmission Date: 20061013
  Serious: Yes (Other)
  Sender: FDA-Public Use
  Company Number: 2006EN000125

PATIENT
  Age: 16 Year
  Sex: Male

DRUGS (10)
  1. ONCASPAR [Suspect]
     Indication: NON-HODGKIN'S LYMPHOMA
     Dosage: QOW; IM
     Route: 030
  2. ARA-C [Concomitant]
  3. ETOPOSIDE [Concomitant]
  4. CISPLATIN [Concomitant]
  5. LEUCOVORIN [Concomitant]
  6. IFOSFAMIDE [Concomitant]
  7. VINCRISTINE [Concomitant]
  8. NEUPOGEN [Concomitant]
  9. METHOTREXATE [Concomitant]
  10. DEXAMETHASONE TAB [Concomitant]

REACTIONS (10)
  - ANAEMIA [None]
  - BRAIN OEDEMA [None]
  - CONFUSIONAL STATE [None]
  - HYPERREFLEXIA [None]
  - HYPOREFLEXIA [None]
  - MYDRIASIS [None]
  - NEUROPATHY PERIPHERAL [None]
  - PARTIAL SEIZURES [None]
  - SOMNOLENCE [None]
  - THROMBOCYTOPENIA [None]
